FAERS Safety Report 10996875 (Version 1)
Quarter: 2015Q2

REPORT INFORMATION
  Report Type: Spontaneous
  Country: US (occurrence: None)
  Receive Date: 20150407
  Receipt Date: 20150407
  Transmission Date: 20150821
  Serious: Yes (Hospitalization)
  Sender: FDA-Public Use
  Company Number: None

PATIENT
  Age: 64 Year
  Sex: Male
  Weight: 72.2 kg

DRUGS (3)
  1. SULFAMETHOXAZOLE/TRIMETHOPRIM [Suspect]
     Active Substance: SULFAMETHOXAZOLE\TRIMETHOPRIM
     Indication: PERITONITIS
     Dosage: 800/160 MG, OTHER, PO?
     Route: 048
     Dates: start: 20110810, end: 20141029
  2. CEFTRIAXONE. [Suspect]
     Active Substance: CEFTRIAXONE
  3. SULFAMETHOXAZOLE/TRIMETHOPRIM [Suspect]
     Active Substance: SULFAMETHOXAZOLE\TRIMETHOPRIM
     Indication: PROPHYLAXIS
     Dosage: 800/160 MG, OTHER, PO?
     Route: 048
     Dates: start: 20110810, end: 20141029

REACTIONS (8)
  - Haematemesis [None]
  - Hepatic encephalopathy [None]
  - Clostridium difficile infection [None]
  - Gastrointestinal haemorrhage [None]
  - Encephalopathy [None]
  - Hepatic cirrhosis [None]
  - Gastric haemorrhage [None]
  - Sepsis [None]

NARRATIVE: CASE EVENT DATE: 20141030
